FAERS Safety Report 19642176 (Version 1)
Quarter: 2021Q3

REPORT INFORMATION
  Report Type: Spontaneous
  Country: SK (occurrence: SK)
  Receive Date: 20210731
  Receipt Date: 20210731
  Transmission Date: 20211014
  Serious: Yes (Life-Threatening, Hospitalization, Other)
  Sender: FDA-Public Use
  Company Number: SK-ACCORD-233739

PATIENT
  Age: 72 Year
  Sex: Female

DRUGS (3)
  1. WARFARIN [Suspect]
     Active Substance: WARFARIN
     Indication: ATRIAL FIBRILLATION
     Route: 048
  2. APIXABAN [Suspect]
     Active Substance: APIXABAN
     Indication: ATRIAL FIBRILLATION
     Dosage: 5 MG TWICE A DAY
     Route: 048
  3. ACETYLSALICYLIC ACID [Suspect]
     Active Substance: ASPIRIN
     Indication: ATRIAL THROMBOSIS
     Route: 048

REACTIONS (3)
  - Hypochromic anaemia [Recovering/Resolving]
  - Drug ineffective [Recovered/Resolved with Sequelae]
  - Atrial thrombosis [Recovered/Resolved with Sequelae]

NARRATIVE: CASE EVENT DATE: 2019
